FAERS Safety Report 4318071-X (Version None)
Quarter: 2004Q1

REPORT INFORMATION
  Report Type: 
  Country: None (occurrence: None)
  Receive Date: 20040315
  Receipt Date: 20040305
  Transmission Date: 20041129
  Serious: Yes (Other)
  Sender: FDA-Public Use
  Company Number: 2004-03-0483

PATIENT
  Age: 51 Year
  Sex: Male

DRUGS (2)
  1. PEG-INTRON [Suspect]
     Dosage: SUBCUTANEOUS
     Route: 058
  2. RIBAVIRIN [Suspect]
     Dosage: ORAL
     Route: 048

REACTIONS (2)
  - OEDEMA PERIPHERAL [None]
  - PULMONARY OEDEMA [None]
